FAERS Safety Report 9349251 (Version 1)
Quarter: 2013Q2

REPORT INFORMATION
  Report Type: Report from Study
  Country: KR (occurrence: KR)
  Receive Date: 20130614
  Receipt Date: 20130614
  Transmission Date: 20140414
  Serious: Yes (Hospitalization)
  Sender: FDA-Public Use
  Company Number: KR-BRISTOL-MYERS SQUIBB COMPANY-18819300

PATIENT
  Age: 41 Year
  Sex: Male

DRUGS (1)
  1. DASATINIB [Suspect]
     Dosage: DOSE INCREASED?05OCT12-28MAY12:140MG?29MAY13-03JUN2013:180MG?DRUG INTERRUPTED
     Route: 048
     Dates: start: 20121005

REACTIONS (3)
  - Infection [Unknown]
  - Chloroma [Recovered/Resolved with Sequelae]
  - Haematochezia [Unknown]
